FAERS Safety Report 6587143-1 (Version None)
Quarter: 2010Q1

REPORT INFORMATION
  Report Type: 
  Country: None (occurrence: None)
  Receive Date: 20100217
  Receipt Date: 20090427
  Transmission Date: 20100710
  Serious: No
  Sender: FDA-Public Use
  Company Number: US-ALLERGAN-0905797US

PATIENT
  Age: 46 Year
  Sex: Female

DRUGS (2)
  1. BOTOX [Suspect]
     Indication: HEADACHE
     Dosage: 100 UNITS, SINGLE
     Route: 030
     Dates: start: 20090408, end: 20090408
  2. BOTOX [Suspect]
     Indication: MIGRAINE

REACTIONS (1)
  - NECK PAIN [None]
